FAERS Safety Report 7880715-3 (Version None)
Quarter: 2011Q4

REPORT INFORMATION
  Report Type: 
  Country: None (occurrence: None)
  Receive Date: 20111101
  Receipt Date: 20111021
  Transmission Date: 20120403
  Serious: Yes (Hospitalization, Other)
  Sender: FDA-Public Use
  Company Number: US-JNJFOC-20111010596

PATIENT
  Sex: Female
  Weight: 98.88 kg

DRUGS (4)
  1. LISINOPRIL [Concomitant]
     Indication: HYPERTENSION
     Route: 048
     Dates: end: 20110601
  2. DILTIAZ [Concomitant]
     Indication: HYPERTENSION
     Dosage: 180/24MG/CAPSULEMG
     Route: 048
  3. CHEMOTHERAPY [Suspect]
     Indication: BREAST CANCER
  4. REMICADE [Suspect]
     Indication: RHEUMATOID ARTHRITIS
     Route: 042
     Dates: start: 20100101, end: 20101201

REACTIONS (9)
  - THROMBOSIS [None]
  - INFECTION [None]
  - WEIGHT INCREASED [None]
  - BREAST CANCER [None]
  - RENAL FAILURE [None]
  - PYREXIA [None]
  - FLUID RETENTION [None]
  - COGNITIVE DISORDER [None]
  - HYPERTENSION [None]
